FAERS Safety Report 14930388 (Version 1)
Quarter: 2018Q2

REPORT INFORMATION
  Report Type: Spontaneous
  Country: US (occurrence: US)
  Receive Date: 20180523
  Receipt Date: 20180523
  Transmission Date: 20180711
  Serious: No
  Sender: FDA-Public Use
  Company Number: US-JNJFOC-20180433976

PATIENT
  Age: 60 Year
  Sex: Female
  Weight: 47.17 kg

DRUGS (2)
  1. ADVIL [Concomitant]
     Active Substance: IBUPROFEN
     Indication: ANALGESIC THERAPY
     Route: 065
  2. CHILDRENS TYLENOL [Suspect]
     Active Substance: ACETAMINOPHEN
     Indication: ANALGESIC THERAPY
     Dosage: 15CC, ONE TIME
     Route: 065
     Dates: start: 20180422, end: 20180422

REACTIONS (2)
  - Facial pain [Not Recovered/Not Resolved]
  - Drug administered to patient of inappropriate age [Unknown]

NARRATIVE: CASE EVENT DATE: 20180422
